FAERS Safety Report 14449248 (Version 1)
Quarter: 2018Q1

REPORT INFORMATION
  Report Type: Spontaneous
  Country: US (occurrence: US)
  Receive Date: 20180127
  Receipt Date: 20180127
  Transmission Date: 20180509
  Serious: Yes (Hospitalization)
  Sender: FDA-Public Use
  Company Number: US-ROCHE-2062934

PATIENT
  Sex: Female

DRUGS (9)
  1. CEFUROXIME. [Concomitant]
     Active Substance: CEFUROXIME
  2. ACETYLCYSTEINE. [Concomitant]
     Active Substance: ACETYLCYSTEINE
  3. ADCIRCA [Concomitant]
     Active Substance: TADALAFIL
  4. ALPRAZOLAM. [Concomitant]
     Active Substance: ALPRAZOLAM
  5. PREDNISONE. [Concomitant]
     Active Substance: PREDNISONE
  6. METRONIDAZOLE. [Concomitant]
     Active Substance: METRONIDAZOLE
  7. IPRATROPIUM [Concomitant]
     Active Substance: IPRATROPIUM
  8. ALBUTEROL. [Concomitant]
     Active Substance: ALBUTEROL
  9. ESBRIET [Suspect]
     Active Substance: PIRFENIDONE
     Indication: PRODUCT USED FOR UNKNOWN INDICATION
     Dosage: ONGOING, 267 MG
     Route: 048
     Dates: start: 20170208

REACTIONS (1)
  - Oxygen saturation decreased [Not Recovered/Not Resolved]
